FAERS Safety Report 25174868 (Version 4)
Quarter: 2025Q2

REPORT INFORMATION
  Report Type: Spontaneous
  Country: US (occurrence: US)
  Receive Date: 20250408
  Receipt Date: 20250602
  Transmission Date: 20250717
  Serious: Yes (Other)
  Sender: UCB
  Company Number: US-UCBSA-2025020037

PATIENT
  Age: 9 Year
  Sex: Male
  Weight: 27.211 kg

DRUGS (5)
  1. BRIVIACT [Suspect]
     Active Substance: BRIVARACETAM
     Indication: Epilepsy
     Dosage: 9 MILLILITER, 2X/DAY (BID)
     Route: 048
     Dates: start: 2020
  2. BRIVIACT [Suspect]
     Active Substance: BRIVARACETAM
     Route: 048
     Dates: start: 202411
  3. BRIVIACT [Suspect]
     Active Substance: BRIVARACETAM
     Dosage: 8 MILLILITER, 2X/DAY (BID)
     Route: 048
     Dates: start: 202505
  4. CLONAZEPAM [Concomitant]
     Active Substance: CLONAZEPAM
     Indication: Product used for unknown indication
     Dates: start: 2018
  5. EPIDIOLEX [Concomitant]
     Active Substance: CANNABIDIOL
     Indication: Product used for unknown indication
     Dates: start: 2019

REACTIONS (9)
  - Seizure [Recovering/Resolving]
  - Hallucination [Not Recovered/Not Resolved]
  - Ear infection [Recovering/Resolving]
  - Aggression [Not Recovered/Not Resolved]
  - Dyspnoea [Not Recovered/Not Resolved]
  - Drug level increased [Not Recovered/Not Resolved]
  - Overdose [Unknown]
  - Behaviour disorder [Unknown]
  - Drug ineffective [Unknown]

NARRATIVE: CASE EVENT DATE: 20241101
